FAERS Safety Report 6040639-3 (Version None)
Quarter: 2009Q1

REPORT INFORMATION
  Report Type: 
  Country: None (occurrence: None)
  Receive Date: 20090116
  Receipt Date: 20080423
  Transmission Date: 20090719
  Serious: Yes (Other)
  Sender: FDA-Public Use
  Company Number: US-BRISTOL-MYERS SQUIBB COMPANY-14163869

PATIENT
  Age: 56 Year
  Sex: Male

DRUGS (3)
  1. ABILIFY [Suspect]
  2. SEROQUEL [Suspect]
  3. CLOZAPINE [Suspect]

REACTIONS (2)
  - GRANULOCYTOPENIA [None]
  - LEUKOPENIA [None]
